FAERS Safety Report 8639748 (Version 3)
Quarter: 2013Q2

REPORT INFORMATION
  Report Type: Spontaneous
  Country: IT (occurrence: IT)
  Receive Date: 20120628
  Receipt Date: 20130515
  Transmission Date: 20140414
  Serious: Yes (Hospitalization)
  Sender: FDA-Public Use
  Company Number: IT-BRISTOL-MYERS SQUIBB COMPANY-16706046

PATIENT
  Age: 45 Year
  Sex: Female

DRUGS (3)
  1. ERBITUX SOLN FOR INF [Suspect]
     Indication: COLORECTAL CANCER
     Route: 042
     Dates: start: 20110622, end: 20111102
  2. CAMPTO [Concomitant]
     Indication: COLORECTAL CANCER
     Route: 042
     Dates: start: 20110622, end: 20111102
  3. FLUOROURACIL [Concomitant]
     Indication: COLORECTAL CANCER
     Route: 042
     Dates: start: 20110622, end: 20111102

REACTIONS (2)
  - Gastroenteritis [Recovered/Resolved]
  - Skin ulcer [Recovered/Resolved]
